FAERS Safety Report 5252625-1 (Version None)
Quarter: 2007Q1

REPORT INFORMATION
  Report Type: 
  Country: None (occurrence: None)
  Receive Date: 20070301
  Receipt Date: 20061030
  Transmission Date: 20070707
  Serious: No
  Sender: FDA-Public Use
  Company Number: US-GLAXOSMITHKLINE-A0625364A

PATIENT
  Age: 68 Year
  Sex: Female

DRUGS (2)
  1. LAMICTAL [Suspect]
     Indication: MAJOR DEPRESSION
     Route: 048
     Dates: start: 20050801, end: 20061001
  2. BLOOD PRESSURE MEDICATION [Concomitant]

REACTIONS (1)
  - RASH [None]
